FAERS Safety Report 4340376-7 (Version None)
Quarter: 2004Q2

REPORT INFORMATION
  Report Type: 
  Country: None (occurrence: None)
  Receive Date: 20040414
  Receipt Date: 20040406
  Transmission Date: 20050107
  Serious: Yes (Hospitalization)
  Sender: FDA-Public Use
  Company Number: 04P-163-0256127-00

PATIENT
  Age: 38 Year
  Sex: Male
  Weight: 72.5755 kg

DRUGS (1)
  1. OMNICEF [Suspect]
     Indication: PHARYNGITIS STREPTOCOCCAL
     Dosage: 300 MG, 2 IN 1 D, PER ORAL
     Route: 048
     Dates: start: 20040201, end: 20040206

REACTIONS (2)
  - CLOSTRIDIUM COLITIS [None]
  - DEHYDRATION [None]
